FAERS Safety Report 17367170 (Version 1)
Quarter: 2020Q1

REPORT INFORMATION
  Report Type: Spontaneous
  Country: US (occurrence: US)
  Receive Date: 20200204
  Receipt Date: 20200204
  Transmission Date: 20200409
  Serious: No
  Sender: FDA-Public Use
  Company Number: US-009507513-2001USA010702

PATIENT
  Sex: Female

DRUGS (3)
  1. GANIRELIX ACETATE INJECTION [Suspect]
     Active Substance: GANIRELIX ACETATE
     Indication: INFERTILITY FEMALE
     Dosage: STRENGTH: 250 MCG/ 0.5M, 250 MCG DAILY
     Route: 058
     Dates: start: 20191025
  2. FOLLISTIM AQ [Suspect]
     Active Substance: FOLLITROPIN
     Indication: INFERTILITY FEMALE
     Dosage: 300 UNITS DAILY
     Route: 058
     Dates: start: 20191025
  3. FOLLISTIM AQ [Suspect]
     Active Substance: FOLLITROPIN

REACTIONS (1)
  - Maternal exposure during pregnancy [Unknown]
